FAERS Safety Report 15417473 (Version 2)
Quarter: 2018Q3

REPORT INFORMATION
  Report Type: Report from Study
  Country: AU (occurrence: AU)
  Receive Date: 20180924
  Receipt Date: 20180927
  Transmission Date: 20181010
  Serious: Yes (Hospitalization)
  Sender: FDA-Public Use
  Company Number: AU-ROCHE-2185180

PATIENT
  Age: 49 Year
  Sex: Male
  Weight: 94 kg

DRUGS (5)
  1. HYDROCORTISONE. [Concomitant]
     Active Substance: HYDROCORTISONE
     Indication: HYPOPITUITARISM
     Route: 048
     Dates: start: 20180523
  2. COBIMETINIB. [Suspect]
     Active Substance: COBIMETINIB
     Indication: MALIGNANT MELANOMA
     Dosage: 12/SEP/2018, MOST RECENT DOSE OF COBIMETINIB PRIOR TO SAE ONSET?DATE OF MOST RECENT DOSE OF COBIMETI
     Route: 048
     Dates: start: 20180831
  3. ELOCON [Concomitant]
     Active Substance: MOMETASONE FUROATE
     Indication: RASH
     Route: 061
     Dates: start: 20180910
  4. THYROXINE [Concomitant]
     Active Substance: LEVOTHYROXINE
     Indication: HYPOTHYROIDISM
     Route: 048
     Dates: start: 20180528
  5. ATEZOLIZUMAB. [Suspect]
     Active Substance: ATEZOLIZUMAB
     Indication: MALIGNANT MELANOMA
     Dosage: 07/SEP/2018, AT 13.00, MOST RECENT DOSE OF ATEZOLIZUMAB PRIOR TO SAE ONSET
     Route: 042
     Dates: start: 20180831

REACTIONS (2)
  - Pyrexia [Recovered/Resolved]
  - Encephalitis autoimmune [Not Recovered/Not Resolved]

NARRATIVE: CASE EVENT DATE: 20180912
